FAERS Safety Report 18325936 (Version 3)
Quarter: 2021Q1

REPORT INFORMATION
  Report Type: Spontaneous
  Country: US (occurrence: US)
  Receive Date: 20200929
  Receipt Date: 20210122
  Transmission Date: 20210419
  Serious: Yes (Other)
  Sender: FDA-Public Use
  Company Number: US-PFIZER INC-2020373539

PATIENT
  Age: 57 Year
  Sex: Female

DRUGS (3)
  1. BRAFTOVI [Suspect]
     Active Substance: ENCORAFENIB
     Dosage: 75 MG, DAILY
  2. BRAFTOVI [Suspect]
     Active Substance: ENCORAFENIB
     Indication: COLON CANCER
     Dosage: 300 MG, DAILY
     Dates: start: 20200901
  3. ERBITUX [Concomitant]
     Active Substance: CETUXIMAB
     Indication: COLON CANCER
     Dosage: UNK, CYCLIC (EVERY 2 WEEKS)

REACTIONS (9)
  - Cystitis [Unknown]
  - Malaise [Unknown]
  - Pain [Unknown]
  - Fall [Recovered/Resolved]
  - Product dose omission issue [Unknown]
  - Sinusitis [Unknown]
  - Feeding disorder [Unknown]
  - Weight decreased [Unknown]
  - Stress [Unknown]

NARRATIVE: CASE EVENT DATE: 2020
